FAERS Safety Report 24832132 (Version 2)
Quarter: 2025Q3

REPORT INFORMATION
  Report Type: Report from Study
  Country: TW (occurrence: TW)
  Receive Date: 20250110
  Receipt Date: 20250803
  Transmission Date: 20251020
  Serious: Yes (Other)
  Sender: ALEXION PHARMACEUTICALS
  Company Number: TW-AstraZeneca-CH-00777813A

PATIENT
  Age: 49 Year
  Sex: Male
  Weight: 80 kg

DRUGS (3)
  1. DURVALUMAB [Suspect]
     Active Substance: DURVALUMAB
     Indication: Lung neoplasm malignant
     Dosage: 1500 MILLIGRAM, Q4W
     Dates: start: 20230811
  2. PREGABALIN [Concomitant]
     Active Substance: PREGABALIN
  3. CODEINE [Concomitant]
     Active Substance: CODEINE

REACTIONS (4)
  - Gastric ulcer [Unknown]
  - Hypothyroidism [Unknown]
  - Neuralgia [Not Recovered/Not Resolved]
  - Oedema peripheral [Not Recovered/Not Resolved]

NARRATIVE: CASE EVENT DATE: 20240101
